FAERS Safety Report 7190554-7 (Version None)
Quarter: 2010Q4

REPORT INFORMATION
  Report Type: 
  Country: None (occurrence: None)
  Receive Date: 20101223
  Receipt Date: 20101216
  Transmission Date: 20110411
  Serious: Yes (Hospitalization)
  Sender: FDA-Public Use
  Company Number: SE-JNJFOC-20101206148

PATIENT
  Sex: Male

DRUGS (2)
  1. IPREN [Suspect]
     Indication: ANALGESIC THERAPY
     Route: 048
  2. PANDEMRIX [Suspect]
     Indication: IMMUNISATION
     Dosage: 0.5ML, SINGLE DOSE

REACTIONS (3)
  - ERYSIPELAS [None]
  - PARAESTHESIA [None]
  - RENAL FAILURE ACUTE [None]
